FAERS Safety Report 22068990 (Version 1)
Quarter: 2023Q1

REPORT INFORMATION
  Report Type: Spontaneous
  Country: US (occurrence: None)
  Receive Date: 20230306
  Receipt Date: 20230306
  Transmission Date: 20230417
  Serious: Yes (Other)
  Sender: FDA-Public Use
  Company Number: None

PATIENT
  Age: 42 Year
  Sex: Female
  Weight: 82.8 kg

DRUGS (1)
  1. SOLU-MEDROL [Suspect]
     Active Substance: METHYLPREDNISOLONE SODIUM SUCCINATE
     Indication: Hypersensitivity
     Dosage: FREQUENCY : ONCE;?OTHER ROUTE : VENTROGLUTEAL;?
     Route: 050
     Dates: start: 20230305, end: 20230305

REACTIONS (2)
  - Injection site pain [None]
  - Arthralgia [None]

NARRATIVE: CASE EVENT DATE: 20230305
